FAERS Safety Report 13611127 (Version 1)
Quarter: 2017Q2

REPORT INFORMATION
  Report Type: Spontaneous
  Country: US (occurrence: US)
  Receive Date: 20170604
  Receipt Date: 20170604
  Transmission Date: 20170830
  Serious: Yes (Disabling)
  Sender: FDA-Public Use
  Company Number: None

PATIENT
  Age: 26 Year
  Sex: Female
  Weight: 88.2 kg

DRUGS (12)
  1. NORETHINDRONE. [Concomitant]
     Active Substance: NORETHINDRONE
  2. FIROCET WITH CODINE [Concomitant]
  3. NORCO [Concomitant]
     Active Substance: ACETAMINOPHEN\HYDROCODONE BITARTRATE
  4. BENADRYL [Concomitant]
     Active Substance: DIPHENHYDRAMINE HYDROCHLORIDE
  5. CORLANOR [Concomitant]
     Active Substance: IVABRADINE HYDROCHLORIDE
  6. GABAPENTIN. [Concomitant]
     Active Substance: GABAPENTIN
  7. LEUPROLIDE ACETATE. [Suspect]
     Active Substance: LEUPROLIDE ACETATE
     Indication: UTERINE LEIOMYOMA
     Dosage: QUANTITY:1 INJECTION(S);OTHER FREQUENCY:EVERY THREE MONTHS;?
     Route: 030
     Dates: start: 20170504
  8. VITAMIN B12 [Concomitant]
     Active Substance: CYANOCOBALAMIN
  9. IMITREX [Concomitant]
     Active Substance: SUMATRIPTAN SUCCINATE
  10. PHENERGAN [Concomitant]
     Active Substance: PROMETHAZINE HYDROCHLORIDE
  11. LEUPROLIDE ACETATE. [Suspect]
     Active Substance: LEUPROLIDE ACETATE
     Indication: ENDOMETRIOSIS
     Dosage: QUANTITY:1 INJECTION(S);OTHER FREQUENCY:EVERY THREE MONTHS;?
     Route: 030
     Dates: start: 20170504
  12. LUPRON [Concomitant]
     Active Substance: LEUPROLIDE ACETATE

REACTIONS (1)
  - Migraine [None]

NARRATIVE: CASE EVENT DATE: 20170509
